FAERS Safety Report 11564196 (Version 1)
Quarter: 2015Q3

REPORT INFORMATION
  Report Type: Spontaneous
  Country: US (occurrence: US)
  Receive Date: 20150916
  Receipt Date: 20150916
  Transmission Date: 20151125
  Serious: No
  Sender: FDA-Public Use
  Company Number: US-ELI_LILLY_AND_COMPANY-US200903000749

PATIENT
  Sex: Female

DRUGS (4)
  1. CALCIUM W/VITAMIN D/00188401/ [Concomitant]
  2. NORVASC /00972401/ [Concomitant]
  3. DIOVAN /01319601/ [Concomitant]
  4. FORTEO [Suspect]
     Active Substance: TERIPARATIDE
     Dates: end: 20090225

REACTIONS (1)
  - Urine abnormality [Unknown]

NARRATIVE: CASE EVENT DATE: 20090220
